FAERS Safety Report 18595160 (Version 1)
Quarter: 2020Q4

REPORT INFORMATION
  Report Type: Report from Study
  Country: GB (occurrence: GB)
  Receive Date: 20201209
  Receipt Date: 20201209
  Transmission Date: 20210114
  Serious: Yes (Hospitalization)
  Sender: FDA-Public Use
  Company Number: GB-BAYER-2020-254775

PATIENT
  Age: 68 Year
  Sex: Male
  Weight: 85 kg

DRUGS (7)
  1. APROTININ 10,000 KIU/ML INJECTION BP (APROTININ) [Suspect]
     Active Substance: APROTININ
     Indication: ENDOCARDITIS
     Dosage: 700 MILLILITRE
     Route: 042
     Dates: start: 20170426, end: 20170426
  2. CRYOPRECIPITATE [Concomitant]
     Active Substance: CRYOPRECIPITATED ANTIHEMOPHILIC FACTOR (HUMAN)
     Indication: PRODUCT USED FOR UNKNOWN INDICATION
     Dosage: UNK
     Route: 065
     Dates: start: 20170426, end: 201704
  3. RED BLOOD CELLS [Concomitant]
     Active Substance: HUMAN RED BLOOD CELL
     Indication: PRODUCT USED FOR UNKNOWN INDICATION
     Dosage: UNK
     Route: 065
     Dates: start: 20170426, end: 201704
  4. ACETYLSALICYLIC ACID [Concomitant]
     Active Substance: ASPIRIN
     Indication: ANTICOAGULANT THERAPY
     Dosage: UNK
     Route: 065
  5. HEPARIN [Concomitant]
     Active Substance: HEPARIN SODIUM
     Indication: ANTICOAGULANT THERAPY
     Dosage: UNK
     Route: 065
     Dates: start: 20170426, end: 20170426
  6. APROTININ 10,000 KIU/ML INJECTION BP (APROTININ) [Suspect]
     Active Substance: APROTININ
     Indication: CARDIOPULMONARY BYPASS
  7. FRESH FROZEN PLASMA [Concomitant]
     Active Substance: HUMAN PLASMA
     Indication: PRODUCT USED FOR UNKNOWN INDICATION
     Dosage: UNK
     Route: 065
     Dates: start: 20170426, end: 201704

REACTIONS (2)
  - Blood creatinine increased [Recovered/Resolved]
  - Off label use [None]

NARRATIVE: CASE EVENT DATE: 20170426
